FAERS Safety Report 8219830-3 (Version None)
Quarter: 2012Q1

REPORT INFORMATION
  Report Type: 
  Country: None (occurrence: None)
  Receive Date: 20120319
  Receipt Date: 20120312
  Transmission Date: 20120608
  Serious: Yes (Hospitalization)
  Sender: FDA-Public Use
  Company Number: PHHY2012US002696

PATIENT
  Age: 75 Year
  Sex: Male

DRUGS (2)
  1. BUFFERIN [Suspect]
     Indication: PAIN
     Route: 048
  2. BUFFERIN [Suspect]
     Dosage: 1 DF, UNK
     Route: 048
     Dates: start: 20111215

REACTIONS (2)
  - BLOOD PRESSURE INCREASED [None]
  - SYNCOPE [None]
